FAERS Safety Report 20883877 (Version 1)
Quarter: 2022Q2

REPORT INFORMATION
  Report Type: Spontaneous
  Country: US (occurrence: None)
  Receive Date: 20220526
  Receipt Date: 20220526
  Transmission Date: 20220720
  Serious: Yes (Other)
  Sender: FDA-Public Use
  Company Number: None

PATIENT
  Age: 46 Year
  Sex: Female
  Weight: 63 kg

DRUGS (1)
  1. KENALOG [Suspect]
     Active Substance: TRIAMCINOLONE ACETONIDE
     Indication: Periarthritis
     Dosage: FREQUENCY : AS NEEDED;?
     Route: 030
     Dates: start: 20220524, end: 20220524

REACTIONS (8)
  - Dizziness [None]
  - Skin warm [None]
  - Hypersensitivity [None]
  - Hypotension [None]
  - Heart rate decreased [None]
  - Pollakiuria [None]
  - Tremor [None]
  - Pyrexia [None]

NARRATIVE: CASE EVENT DATE: 20220525
